FAERS Safety Report 17289936 (Version 6)
Quarter: 2020Q2

REPORT INFORMATION
  Report Type: Report from Study
  Country: AR (occurrence: AR)
  Receive Date: 20200120
  Receipt Date: 20200428
  Transmission Date: 20200713
  Serious: No
  Sender: FDA-Public Use
  Company Number: AR-GLAXOSMITHKLINE-AR2019AMR194526

PATIENT
  Sex: Female

DRUGS (1)
  1. MEPOLIZUMAB [Suspect]
     Active Substance: MEPOLIZUMAB
     Indication: ASTHMA
     Dosage: UNK
     Dates: start: 20181218

REACTIONS (3)
  - Pruritus [Unknown]
  - Pain in extremity [Unknown]
  - Cough [Unknown]
